FAERS Safety Report 16113061 (Version 1)
Quarter: 2019Q1

REPORT INFORMATION
  Report Type: Spontaneous
  Country: ES (occurrence: ES)
  Receive Date: 20190325
  Receipt Date: 20190325
  Transmission Date: 20190418
  Serious: Yes (Other)
  Sender: FDA-Public Use
  Company Number: ES-009507513-1903ESP009378

PATIENT
  Age: 65 Year
  Sex: Female

DRUGS (6)
  1. JANUVIA [Suspect]
     Active Substance: SITAGLIPTIN PHOSPHATE
     Indication: TYPE 2 DIABETES MELLITUS
     Dosage: 100 MILLIGRAM
     Dates: start: 2015
  2. LORAZEPAM. [Concomitant]
     Active Substance: LORAZEPAM
     Indication: DEPRESSION
  3. SIMVASTATIN. [Suspect]
     Active Substance: SIMVASTATIN
     Indication: HYPERCHOLESTEROLAEMIA
  4. LOSARTAN. [Suspect]
     Active Substance: LOSARTAN
     Indication: HYPERTENSION
     Dosage: DOSE: 50 MILLIGRAM
  5. HYDROCHLOROTHIAZIDE (+) LOSARTAN POTASSIUM [Suspect]
     Active Substance: HYDROCHLOROTHIAZIDE\LOSARTAN POTASSIUM
     Indication: HYPERTENSION
     Dosage: DOSE: 50/12.5 MG
  6. ASTUDAL [Suspect]
     Active Substance: AMLODIPINE BESYLATE
     Indication: HYPERTENSION
     Dosage: DOSE: 10 MILLIGRAM

REACTIONS (6)
  - Diabetes mellitus inadequate control [Unknown]
  - Monofilament pressure perception test abnormal [Unknown]
  - Gastric bypass [Unknown]
  - Diabetic retinopathy [Unknown]
  - Macular oedema [Unknown]
  - Urine albumin/creatinine ratio abnormal [Unknown]

NARRATIVE: CASE EVENT DATE: 20161004
